FAERS Safety Report 12803394 (Version 2)
Quarter: 2016Q4

REPORT INFORMATION
  Report Type: Spontaneous
  Country: CH (occurrence: CH)
  Receive Date: 20161003
  Receipt Date: 20161017
  Transmission Date: 20170207
  Serious: Yes (Other)
  Sender: FDA-Public Use
  Company Number: CH-LPDUSPRD-20160856

PATIENT
  Age: 34 Year
  Sex: Female

DRUGS (3)
  1. FERINJECT [Suspect]
     Active Substance: FERRIC CARBOXYMALTOSE
     Dosage: 500 MG OVER 40 MINUTES
     Route: 041
     Dates: start: 20160823, end: 20160823
  2. SYNTOCINON [Concomitant]
     Active Substance: OXYTOCIN
     Route: 042
     Dates: start: 20160824
  3. MISOPROSTOL. [Concomitant]
     Active Substance: MISOPROSTOL
     Route: 048
     Dates: start: 20160824

REACTIONS (12)
  - Malaise [Unknown]
  - Exposure during pregnancy [Recovered/Resolved]
  - Ureaplasma infection [Unknown]
  - Presyncope [Unknown]
  - Vomiting [Unknown]
  - Oedema [Unknown]
  - Diarrhoea [Unknown]
  - Premature separation of placenta [Unknown]
  - Necrosis ischaemic [Unknown]
  - Discomfort [Unknown]
  - Abdominal pain [Unknown]
  - Haemorrhage in pregnancy [Unknown]

NARRATIVE: CASE EVENT DATE: 20160823
